FAERS Safety Report 7355462-7 (Version None)
Quarter: 2011Q1

REPORT INFORMATION
  Report Type: 
  Country: None (occurrence: None)
  Receive Date: 20110316
  Receipt Date: 20110307
  Transmission Date: 20110831
  Serious: Yes (Other)
  Sender: FDA-Public Use
  Company Number: NO-ELI_LILLY_AND_COMPANY-NO201103002957

PATIENT
  Sex: Female

DRUGS (6)
  1. GEMZAR [Suspect]
     Dosage: 1000 MG, WEEKLY (1/W)
     Route: 042
  2. PARACET [Concomitant]
     Dosage: UNK, UNKNOWN
     Route: 048
  3. ZOMETA [Concomitant]
     Dosage: 4 MG, FOUR WEEKS
     Route: 042
     Dates: start: 20090301
  4. GEMZAR [Suspect]
     Indication: BREAST CANCER
     Dosage: 1600 MG, WEEKLY (1/W)
     Route: 042
     Dates: start: 20100713, end: 20101102
  5. HERCEPTIN [Concomitant]
     Dosage: UNK, UNKNOWN
     Route: 042
     Dates: start: 20090301
  6. OXYCONTIN [Concomitant]
     Dosage: 20 MG, DAILY (1/D)
     Route: 048

REACTIONS (1)
  - ERYSIPELAS [None]
